FAERS Safety Report 8908636 (Version 1)
Quarter: 2012Q4

REPORT INFORMATION
  Report Type: 
  Country: US (occurrence: US)
  Receive Date: 20121113
  Receipt Date: 20121113
  Transmission Date: 20130627
  Serious: No
  Sender: FDA-Public Use
  Company Number: US-AMGEN-USASP2012038771

PATIENT
  Age: 44 Year
  Sex: Female
  Weight: 90.7 kg

DRUGS (11)
  1. ENBREL [Suspect]
     Indication: PRODUCT USED FOR UNKNOWN INDICATION
     Dosage: 50 mg, qwk
     Route: 058
  2. LEUCOVORIN CA [Concomitant]
     Dosage: 10 mg, UNK
  3. METHOTREXATE [Concomitant]
     Dosage: 2.5 mg, UNK
  4. LORATADINE [Concomitant]
     Dosage: 10 mg, UNK
  5. FOLIC ACID [Concomitant]
     Dosage: 1 mg, UNK
  6. ALBUTEROL                          /00139501/ [Concomitant]
     Dosage: 90 mug, UNK
  7. FLONASE [Concomitant]
     Dosage: SPR  0.05 %
  8. LIDODERM [Concomitant]
     Dosage: DIS 5 %, UNK
  9. MULTI [Concomitant]
     Dosage: UNK
  10. CALCIUM D                          /00944201/ [Concomitant]
     Dosage: UNK
  11. PULMICORT [Concomitant]
     Dosage: 200 mug, UNK

REACTIONS (1)
  - Fatigue [Unknown]
